FAERS Safety Report 13382972 (Version 1)
Quarter: 2017Q1

REPORT INFORMATION
  Report Type: Spontaneous
  Country: US (occurrence: US)
  Receive Date: 20170329
  Receipt Date: 20170329
  Transmission Date: 20170429
  Serious: No
  Sender: FDA-Public Use
  Company Number: US-BAYER-2017-059598

PATIENT
  Sex: Female

DRUGS (1)
  1. MIRENA [Suspect]
     Active Substance: LEVONORGESTREL
     Indication: CONTRACEPTION
     Dosage: 20 MCG/24HR, CONT
     Route: 015
     Dates: start: 20161220, end: 20161220

REACTIONS (6)
  - Presyncope [None]
  - Procedural pain [None]
  - Complication of device insertion [None]
  - Procedural dizziness [None]
  - Post procedural diarrhoea [None]
  - Procedural vomiting [None]

NARRATIVE: CASE EVENT DATE: 20161220
